FAERS Safety Report 18591743 (Version 1)
Quarter: 2020Q4

REPORT INFORMATION
  Report Type: Report from Study
  Country: NO (occurrence: NO)
  Receive Date: 20201208
  Receipt Date: 20201208
  Transmission Date: 20210114
  Serious: Yes (Death, Life-Threatening, Hospitalization)
  Sender: FDA-Public Use
  Company Number: NO-PFIZER INC-2020410911

PATIENT
  Age: 48 Year
  Sex: Female

DRUGS (6)
  1. BOSUTINIB [Suspect]
     Active Substance: BOSUTINIB
     Indication: CHRONIC MYELOID LEUKAEMIA
     Dosage: 300 MG
     Dates: start: 20200504, end: 20201015
  2. DUPHALAC [Concomitant]
     Active Substance: LACTULOSE
     Indication: CONSTIPATION
     Dosage: 15 ML, AS NEEDED (15ML X 2)
     Dates: start: 20200707
  3. AFIPRAN [Concomitant]
     Active Substance: METOCLOPRAMIDE HYDROCHLORIDE
     Indication: NAUSEA
     Dosage: 10 MG, AS NEEDED (10MGX3)
     Dates: start: 20200504
  4. DIVISUN [Concomitant]
     Active Substance: CHOLECALCIFEROL
     Indication: HYPOVITAMINOSIS
     Dosage: 2000 UNK (2000X 1)
     Dates: start: 20200518
  5. NIFEREX [IRON POLYSACCHARIDE COMPLEX] [Concomitant]
     Indication: IRON DEFICIENCY
     Dosage: 100 MG, ALTERNATE DAY  (100MGX1 /EVERY SECOND DAY)
     Dates: start: 20200518
  6. REMERON [Concomitant]
     Active Substance: MIRTAZAPINE
     Indication: DEPRESSION
     Dosage: 15 MG, AS NEEDED (15MGX1)
     Dates: start: 20201009

REACTIONS (4)
  - Anaemia [Not Recovered/Not Resolved]
  - Sepsis [Fatal]
  - Bone marrow failure [Not Recovered/Not Resolved]
  - Platelet count decreased [Not Recovered/Not Resolved]

NARRATIVE: CASE EVENT DATE: 20201015
